FAERS Safety Report 10370008 (Version 1)
Quarter: 2014Q3

REPORT INFORMATION
  Report Type: Report from Study
  Country: DE (occurrence: DE)
  Receive Date: 20140808
  Receipt Date: 20140808
  Transmission Date: 20150326
  Serious: Yes (Hospitalization)
  Sender: FDA-Public Use
  Company Number: DE-BIOGENIDEC-2014BI078911

PATIENT
  Sex: Male

DRUGS (1)
  1. TECFIDERA [Suspect]
     Active Substance: DIMETHYL FUMARATE
     Indication: RELAPSING-REMITTING MULTIPLE SCLEROSIS
     Route: 048
     Dates: start: 20140523

REACTIONS (3)
  - Visual impairment [Recovered/Resolved with Sequelae]
  - Visual acuity reduced [Recovered/Resolved with Sequelae]
  - Cataract [Recovered/Resolved with Sequelae]

NARRATIVE: CASE EVENT DATE: 2014
